FAERS Safety Report 6709488-4 (Version None)
Quarter: 2010Q2

REPORT INFORMATION
  Report Type: 
  Country: None (occurrence: None)
  Receive Date: 20100504
  Receipt Date: 20100423
  Transmission Date: 20101027
  Serious: Yes (Death, Hospitalization, Other)
  Sender: FDA-Public Use
  Company Number: US-BAYER-200920703NA

PATIENT
  Age: 25 Year
  Sex: Female
  Weight: 68 kg

DRUGS (2)
  1. YAZ [Suspect]
     Indication: CONTRACEPTION
     Dosage: TOTAL DAILY DOSE: 1 DF
     Route: 048
     Dates: start: 20060425, end: 20060522
  2. ANTICOAGULANT [Concomitant]

REACTIONS (6)
  - APHASIA [None]
  - CONVULSION [None]
  - FALL [None]
  - HEMIPARESIS [None]
  - SYNCOPE [None]
  - THROMBOTIC CEREBRAL INFARCTION [None]
